FAERS Safety Report 4641996-2 (Version None)
Quarter: 2005Q2

REPORT INFORMATION
  Report Type: 
  Country: None (occurrence: None)
  Receive Date: 20050421
  Receipt Date: 20050401
  Transmission Date: 20051028
  Serious: Yes (Hospitalization)
  Sender: FDA-Public Use
  Company Number: USA050393154

PATIENT
  Age: 69 Year
  Sex: Male
  Weight: 76 kg

DRUGS (2)
  1. GEMZAR [Suspect]
     Indication: TRANSITIONAL CELL CARCINOMA
     Dosage: 1000 MG/M2
     Route: 042
     Dates: start: 20030107, end: 20050224
  2. CARBOPLATIN [Concomitant]

REACTIONS (7)
  - DYSPNOEA EXERTIONAL [None]
  - FLUID RETENTION [None]
  - OEDEMA [None]
  - PAIN IN EXTREMITY [None]
  - PELVIC PAIN [None]
  - URINARY RETENTION [None]
  - WEIGHT INCREASED [None]
